FAERS Safety Report 9496974 (Version 2)
Quarter: 2013Q3

REPORT INFORMATION
  Report Type: Spontaneous
  Country: US (occurrence: US)
  Receive Date: 20130904
  Receipt Date: 20130904
  Transmission Date: 20140515
  Serious: No
  Sender: FDA-Public Use
  Company Number: US-AMGEN-USASP2013049420

PATIENT
  Age: 14 Year
  Sex: Female
  Weight: 71.9 kg

DRUGS (2)
  1. ENBREL [Suspect]
     Indication: JUVENILE IDIOPATHIC ARTHRITIS
     Dosage: 50 MG, QWK
     Route: 058
     Dates: start: 20130301
  2. METHOTREXATE [Concomitant]
     Indication: JUVENILE IDIOPATHIC ARTHRITIS
     Dosage: 25 MG, QWK
     Route: 058
     Dates: start: 20130301

REACTIONS (5)
  - Osteitis [Not Recovered/Not Resolved]
  - Bone erosion [Not Recovered/Not Resolved]
  - Joint effusion [Unknown]
  - Arthritis [Unknown]
  - Bone marrow oedema [Unknown]
